FAERS Safety Report 9229600 (Version 6)
Quarter: 2013Q3

REPORT INFORMATION
  Report Type: Spontaneous
  Country: US (occurrence: US)
  Receive Date: 20130414
  Receipt Date: 20130923
  Transmission Date: 20140515
  Serious: Yes (Hospitalization, Other)
  Sender: FDA-Public Use
  Company Number: US-UCBSA-082692

PATIENT
  Age: 32 Year
  Sex: Male

DRUGS (7)
  1. CIMZIA [Suspect]
     Indication: CROHN^S DISEASE
     Dates: start: 20130109, end: 20130819
  2. CIMZIA [Suspect]
     Indication: CROHN^S DISEASE
  3. DILAUDID [Concomitant]
     Indication: ABDOMINAL PAIN
     Dosage: 4 ?G EVERY 4 HRS AS REQUIRED
     Route: 048
     Dates: start: 2013, end: 20130516
  4. LANSOPRAZOLE [Concomitant]
     Indication: DYSPEPSIA
     Dosage: TOTAL DAILY DOSE- 40 ?G
     Route: 048
  5. METHADONE [Concomitant]
     Indication: ABDOMINAL PAIN
     Route: 048
     Dates: start: 2013, end: 20130521
  6. REMERON [Concomitant]
     Indication: DEPRESSION
     Dosage: 45 ?G NIGHTLY ONCE
     Route: 048
  7. REGLAN [Concomitant]
     Indication: NAUSEA
     Dosage: 5 ?G THRICE DAILY AS REQUIRED
     Route: 048

REACTIONS (8)
  - Pneumonia [Recovered/Resolved]
  - Crohn^s disease [Recovered/Resolved]
  - Failure to thrive [Recovered/Resolved]
  - Acute respiratory distress syndrome [Recovered/Resolved]
  - Dehydration [Recovered/Resolved]
  - Faecal incontinence [Recovered/Resolved]
  - Somnolence [Recovered/Resolved]
  - Drug ineffective [Recovered/Resolved]
